FAERS Safety Report 5374006-2 (Version None)
Quarter: 2007Q2

REPORT INFORMATION
  Report Type: 
  Country: None (occurrence: None)
  Receive Date: 20070628
  Receipt Date: 20070626
  Transmission Date: 20071010
  Serious: Yes (Disabling, Other)
  Sender: FDA-Public Use
  Company Number: US-MERCK-0609USA05562

PATIENT
  Age: 76 Year
  Sex: Female

DRUGS (2)
  1. FOSAMAX [Suspect]
     Indication: OSTEOPOROSIS
     Route: 048
     Dates: end: 20041114
  2. FOSAMAX [Suspect]
     Route: 048
     Dates: start: 19990801

REACTIONS (11)
  - ARTHROPATHY [None]
  - BASAL CELL CARCINOMA [None]
  - BREAST CYST [None]
  - CARPAL TUNNEL SYNDROME [None]
  - CATARACT [None]
  - DIVERTICULUM [None]
  - GASTRITIS HYPERTROPHIC [None]
  - INTESTINAL POLYP [None]
  - LARYNGEAL DISORDER [None]
  - OSTEONECROSIS [None]
  - UTERINE LEIOMYOMA [None]
